FAERS Safety Report 13098892 (Version 2)
Quarter: 2017Q1

REPORT INFORMATION
  Report Type: Spontaneous
  Country: US (occurrence: US)
  Receive Date: 20170109
  Receipt Date: 20170327
  Transmission Date: 20170428
  Serious: Yes (Hospitalization, Other)
  Sender: FDA-Public Use
  Company Number: US-009507513-1701USA003236

PATIENT
  Sex: Female
  Weight: 58.96 kg

DRUGS (2)
  1. NUVARING [Suspect]
     Active Substance: ETHINYL ESTRADIOL\ETONOGESTREL
     Indication: CONTRACEPTION
     Dosage: 1 DF, UNK
     Route: 067
     Dates: start: 2007, end: 20081224
  2. NUVARING [Suspect]
     Active Substance: ETHINYL ESTRADIOL\ETONOGESTREL
     Indication: HORMONE LEVEL ABNORMAL
     Dosage: 0.12-0.015 MG/24 HR
     Route: 067
     Dates: start: 20090509, end: 20140129

REACTIONS (20)
  - Cyanosis [Unknown]
  - Nodule [Unknown]
  - Chest pain [Unknown]
  - Anxiety [Not Recovered/Not Resolved]
  - Cervical polypectomy [Unknown]
  - Palpitations [Recovered/Resolved]
  - Pain [Unknown]
  - Acne [Unknown]
  - Deep vein thrombosis [Not Recovered/Not Resolved]
  - Pulmonary embolism [Recovering/Resolving]
  - Depressed mood [Unknown]
  - Migraine [Not Recovered/Not Resolved]
  - Visual field defect [Unknown]
  - Poor quality sleep [Unknown]
  - Mitral valve incompetence [Recovered/Resolved]
  - Vascular headache [Unknown]
  - Chest pain [Unknown]
  - Pain in extremity [Unknown]
  - Neck pain [Unknown]
  - Tension headache [Unknown]

NARRATIVE: CASE EVENT DATE: 2011
